FAERS Safety Report 6466914-6 (Version None)
Quarter: 2009Q4

REPORT INFORMATION
  Report Type: 
  Country: None (occurrence: None)
  Receive Date: 20091202
  Receipt Date: 20091124
  Transmission Date: 20100525
  Serious: Yes (Other)
  Sender: FDA-Public Use
  Company Number: JP-PFIZER INC-2009303266

PATIENT
  Age: 71 Year
  Sex: Male
  Weight: 49 kg

DRUGS (8)
  1. SUNITINIB MALATE [Suspect]
     Indication: RENAL CELL CARCINOMA
     Dosage: 37.5 MG, 1X/DAY
     Route: 048
     Dates: start: 20090902
  2. AMLODIPINE BESILATE [Concomitant]
     Dosage: UNK
     Route: 048
  3. PURSENNID [Concomitant]
     Dosage: UNK
     Route: 048
  4. PRAVASTATIN SODIUM [Concomitant]
     Dosage: UNK
     Route: 048
  5. SOFALCONE [Concomitant]
     Dosage: UNK
     Route: 048
  6. MILMAG [Concomitant]
     Dosage: UNK
     Route: 048
  7. OMEPRAZOLE [Concomitant]
     Dosage: UNK
     Route: 048
  8. EBASTINE [Concomitant]
     Dosage: UNK
     Route: 048

REACTIONS (1)
  - BONE MARROW FAILURE [None]
